FAERS Safety Report 6247206-7 (Version None)
Quarter: 2009Q2

REPORT INFORMATION
  Report Type: 
  Country: None (occurrence: None)
  Receive Date: 20090624
  Receipt Date: 20090624
  Transmission Date: 20091009
  Serious: Yes (Disabling)
  Sender: FDA-Public Use
  Company Number: None

PATIENT
  Age: 54 Year
  Sex: Female
  Weight: 72.5755 kg

DRUGS (2)
  1. REBIF [Suspect]
     Indication: MULTIPLE SCLEROSIS
     Dosage: PREFILLED SYRINGE 3X WEEK SQ
     Dates: start: 20080414, end: 20081214
  2. REBIF [Suspect]
     Indication: MULTIPLE SCLEROSIS
     Dosage: PREFILLED STRINGE 3X WEEK SQ
     Dates: start: 20081214, end: 20090414

REACTIONS (3)
  - CONDITION AGGRAVATED [None]
  - HEPATIC ENZYME INCREASED [None]
  - MULTIPLE SCLEROSIS [None]
